FAERS Safety Report 25031462 (Version 2)
Quarter: 2025Q4

REPORT INFORMATION
  Report Type: Spontaneous
  Country: EU (occurrence: EU)
  Receive Date: 20250303
  Receipt Date: 20251029
  Transmission Date: 20260118
  Serious: Yes (Hospitalization)
  Sender: DR REDDYS
  Company Number: None

PATIENT
  Age: 31 Year
  Sex: Female
  Weight: 99 kg

DRUGS (46)
  1. PREGABALIN [Suspect]
     Active Substance: PREGABALIN
     Indication: Pain
     Route: 048
  2. PREGABALIN [Suspect]
     Active Substance: PREGABALIN
     Route: 048
  3. PREGABALIN [Suspect]
     Active Substance: PREGABALIN
     Route: 048
  4. PREGABALIN [Suspect]
     Active Substance: PREGABALIN
     Route: 048
  5. OCREVUS [Suspect]
     Active Substance: OCRELIZUMAB
     Indication: Secondary progressive multiple sclerosis
     Dosage: LAST INFUSIONS: AUG-2021, MID-MAR-2022.
     Route: 042
     Dates: start: 20190115
  6. OCREVUS [Suspect]
     Active Substance: OCRELIZUMAB
     Route: 042
     Dates: start: 20190129
  7. OCREVUS [Suspect]
     Active Substance: OCRELIZUMAB
     Route: 042
     Dates: start: 20190927
  8. OCREVUS [Suspect]
     Active Substance: OCRELIZUMAB
     Route: 042
     Dates: start: 20200331, end: 20200331
  9. OCREVUS [Suspect]
     Active Substance: OCRELIZUMAB
     Dosage: LAST INFUSIONS: AUG-2021, MID-MAR-2022.
     Route: 042
     Dates: start: 20190115
  10. OCREVUS [Suspect]
     Active Substance: OCRELIZUMAB
     Route: 042
     Dates: start: 20240119
  11. OCREVUS [Suspect]
     Active Substance: OCRELIZUMAB
     Route: 042
  12. OCREVUS [Suspect]
     Active Substance: OCRELIZUMAB
     Route: 042
  13. OCREVUS [Suspect]
     Active Substance: OCRELIZUMAB
     Route: 042
     Dates: start: 2019
  14. AMITRIPTYLINE HYDROCHLORIDE [Suspect]
     Active Substance: AMITRIPTYLINE HYDROCHLORIDE
     Indication: Depression
     Dosage: AT NIGHT
     Route: 048
  15. BACLOFEN [Suspect]
     Active Substance: BACLOFEN
     Indication: Ataxia
  16. BACLOFEN [Suspect]
     Active Substance: BACLOFEN
     Route: 048
  17. BACLOFEN [Suspect]
     Active Substance: BACLOFEN
  18. BACLOFEN [Suspect]
     Active Substance: BACLOFEN
  19. BACLOFEN [Suspect]
     Active Substance: BACLOFEN
     Dosage: 2-2-2
  20. BACLOFEN [Suspect]
     Active Substance: BACLOFEN
     Dosage: 2-2-2
     Route: 065
  21. NABIXIMOLS [Suspect]
     Active Substance: NABIXIMOLS
     Indication: Neuralgia
     Dosage: SPRAY
     Route: 065
     Dates: end: 202312
  22. NABIXIMOLS [Suspect]
     Active Substance: NABIXIMOLS
     Indication: Muscle spasticity
  23. CORTISONE [Suspect]
     Active Substance: CORTISONE
     Indication: Multiple sclerosis relapse
     Dosage: FOR 5 DAYS
     Route: 042
  24. CORTISONE [Suspect]
     Active Substance: CORTISONE
     Dosage: FOR 5 DAYS
     Route: 042
  25. CORTISONE [Suspect]
     Active Substance: CORTISONE
     Dosage: FOR 5 DAYS?THERAPY START DATE: -MAR-2019
     Route: 042
  26. CANDESARTAN [Concomitant]
     Active Substance: CANDESARTAN
     Indication: Hypertension
     Dosage: 1-0-0
     Route: 048
     Dates: start: 20190927
  27. AMLODIPINE [Concomitant]
     Active Substance: AMLODIPINE BESYLATE
     Indication: Hypertension
     Route: 048
  28. AMLODIPINE [Concomitant]
     Active Substance: AMLODIPINE BESYLATE
     Route: 048
  29. AMLODIPINE [Concomitant]
     Active Substance: AMLODIPINE BESYLATE
     Route: 048
  30. SYMBICORT [Concomitant]
     Active Substance: BUDESONIDE\FORMOTEROL FUMARATE DIHYDRATE
     Indication: Product used for unknown indication
     Dosage: TURBOHAYLER 2 SPRAYS (1-0-1)
  31. SYMBICORT [Concomitant]
     Active Substance: BUDESONIDE\FORMOTEROL FUMARATE DIHYDRATE
     Dosage: TURBOHAYLER 2 SPRAYS (1-0-1)
  32. SYMBICORT [Concomitant]
     Active Substance: BUDESONIDE\FORMOTEROL FUMARATE DIHYDRATE
     Dosage: TURBOHAYLER 2 SPRAYS (1-0-1)
  33. POLYETHYLENE GLYCOLS [Concomitant]
     Active Substance: POLYETHYLENE GLYCOLS
     Indication: Product used for unknown indication
     Dosage: DOSE: 2 SACHETS IN THE MORNING
  34. POLYETHYLENE GLYCOLS [Concomitant]
     Active Substance: POLYETHYLENE GLYCOLS
     Dosage: DOSE: 2 SACHETS IN THE MORNING
  35. POLYETHYLENE GLYCOLS [Concomitant]
     Active Substance: POLYETHYLENE GLYCOLS
     Dosage: DOSE: 2 SACHETS IN THE MORNING
  36. AMANTADINE [Concomitant]
     Active Substance: AMANTADINE
     Indication: Fatigue
     Dosage: 1-1-0
     Route: 048
  37. AMANTADINE [Concomitant]
     Active Substance: AMANTADINE
     Dosage: 1-1-0
     Route: 048
  38. AMANTADINE [Concomitant]
     Active Substance: AMANTADINE
     Dosage: 1-1-0
     Route: 048
  39. SALBUHEXAL [Concomitant]
     Active Substance: ALBUTEROL
     Indication: Product used for unknown indication
     Dosage: DOSE: 4 X 1 SPRAY DAILY
  40. SALBUHEXAL [Concomitant]
     Active Substance: ALBUTEROL
     Dosage: DOSE: 4 X 1 SPRAY DAILY
  41. SALBUHEXAL [Concomitant]
     Active Substance: ALBUTEROL
     Dosage: DOSE: 4 X 1 SPRAY DAILY
  42. SALBUHEXAL [Concomitant]
     Active Substance: ALBUTEROL
     Dosage: DOSE: 4 X 1 SPRAY DAILY
  43. SALBUHEXAL [Concomitant]
     Active Substance: ALBUTEROL
     Dosage: DOSE: 4 X 1 SPRAY DAILY
  44. SALBUHEXAL [Concomitant]
     Active Substance: ALBUTEROL
     Dosage: DOSE: 4 X 1 SPRAY DAILY
  45. NOVALGIN (METAMIZOLE SODIUM) [Concomitant]
     Active Substance: METAMIZOLE SODIUM
     Indication: Pain
     Dosage: AS REQUIRED
     Route: 048
     Dates: start: 20200331
  46. PANTOZOL [Concomitant]
     Active Substance: PANTOPRAZOLE SODIUM
     Indication: Gastrointestinal disorder prophylaxis
     Route: 048

REACTIONS (24)
  - Depression [Recovering/Resolving]
  - Heart rate increased [Recovered/Resolved]
  - Off label use [Unknown]
  - Intentional product use issue [Unknown]
  - Fall [Unknown]
  - Muscle spasticity [Not Recovered/Not Resolved]
  - Neuralgia [Not Recovered/Not Resolved]
  - Gait disturbance [Not Recovered/Not Resolved]
  - Gait disturbance [Recovered/Resolved]
  - Alopecia [Recovered/Resolved]
  - Neuralgia [Not Recovered/Not Resolved]
  - Asthma [Unknown]
  - Pain [Recovered/Resolved]
  - Cough [Not Recovered/Not Resolved]
  - Breast mass [Recovered/Resolved]
  - Oropharyngeal pain [Recovered/Resolved]
  - Bronchitis [Recovered/Resolved]
  - Sleep disorder [Recovered/Resolved]
  - Fatigue [Recovered/Resolved]
  - Agitation [Recovering/Resolving]
  - Tension [Recovering/Resolving]
  - Blood immunoglobulin G decreased [Not Recovered/Not Resolved]
  - Stomatitis [Recovered/Resolved]
  - Weight increased [Recovering/Resolving]

NARRATIVE: CASE EVENT DATE: 20190115
